FAERS Safety Report 14629598 (Version 4)
Quarter: 2018Q2

REPORT INFORMATION
  Report Type: Spontaneous
  Country: JP (occurrence: JP)
  Receive Date: 20180313
  Receipt Date: 20180521
  Transmission Date: 20180711
  Serious: Yes (Life-Threatening, Hospitalization)
  Sender: FDA-Public Use
  Company Number: JP-ROCHE-2089346

PATIENT
  Age: 42 Year
  Sex: Female

DRUGS (3)
  1. RUPATADINE [Concomitant]
     Active Substance: RUPATADINE
     Indication: URTICARIA
     Dosage: 10 MG, BID
     Route: 048
     Dates: start: 201802
  2. XOLAIR [Suspect]
     Active Substance: OMALIZUMAB
     Indication: URTICARIA CHRONIC
     Route: 058
     Dates: start: 20180309
  3. FAMOTIDINE. [Concomitant]
     Active Substance: FAMOTIDINE
     Indication: URTICARIA
     Dosage: 20 MG, QD
     Route: 048
     Dates: start: 201802

REACTIONS (1)
  - Anaphylactic shock [Recovering/Resolving]

NARRATIVE: CASE EVENT DATE: 20180309
